FAERS Safety Report 5317907-3 (Version None)
Quarter: 2007Q2

REPORT INFORMATION
  Report Type: 
  Country: None (occurrence: None)
  Receive Date: 20070507
  Receipt Date: 20070425
  Transmission Date: 20071010
  Serious: Yes (Other)
  Sender: FDA-Public Use
  Company Number: B0463560A

PATIENT
  Age: 67 Year
  Sex: Male

DRUGS (3)
  1. AVANDAMET [Suspect]
     Dosage: 2TAB PER DAY
     Route: 048
     Dates: start: 20060202, end: 20070323
  2. VASTEN [Concomitant]
     Dosage: 20MG PER DAY
     Route: 048
     Dates: start: 20050101
  3. OMEGA 3 FATTY ACID [Concomitant]
     Route: 065

REACTIONS (2)
  - FIBULA FRACTURE [None]
  - THROMBOSIS [None]
